FAERS Safety Report 23600449 (Version 1)
Quarter: 2024Q1

REPORT INFORMATION
  Report Type: Spontaneous
  Country: US (occurrence: None)
  Receive Date: 20240305
  Receipt Date: 20240305
  Transmission Date: 20240410
  Serious: Yes (Other)
  Sender: FDA-Public Use
  Company Number: None

PATIENT
  Sex: Male

DRUGS (2)
  1. ENBREL [Suspect]
     Active Substance: ETANERCEPT
     Indication: Psoriatic arthropathy
     Dosage: FREQUENCY : WEEKLY;?
     Route: 058
     Dates: start: 20161104
  2. ULORIC [Concomitant]
     Active Substance: FEBUXOSTAT

REACTIONS (4)
  - Psoriatic arthropathy [None]
  - Pain [None]
  - Rash [None]
  - Therapy interrupted [None]
